FAERS Safety Report 16932671 (Version 1)
Quarter: 2019Q4

REPORT INFORMATION
  Report Type: Spontaneous
  Country: US (occurrence: US)
  Receive Date: 20191018
  Receipt Date: 20191018
  Transmission Date: 20200122
  Serious: No
  Sender: FDA-Public Use
  Company Number: US-LUPIN PHARMACEUTICALS INC.-2019-04451

PATIENT
  Age: 93 Year
  Sex: Female

DRUGS (2)
  1. PROZAC [Concomitant]
     Active Substance: FLUOXETINE HYDROCHLORIDE
     Indication: PRODUCT USED FOR UNKNOWN INDICATION
     Dosage: UNK, SINCE LAST 3 MONTHS
     Route: 065
  2. MEMANTINE HYDROCHLORIDE EXTENDED RELEASE CAPSULE, 28 MG [Suspect]
     Active Substance: MEMANTINE HYDROCHLORIDE
     Indication: PRODUCT USED FOR UNKNOWN INDICATION
     Dosage: UNK
     Route: 065
     Dates: start: 20190530, end: 20190608

REACTIONS (2)
  - Adverse drug reaction [Unknown]
  - Mental disorder [Unknown]

NARRATIVE: CASE EVENT DATE: 20190606
